FAERS Safety Report 7477998-0 (Version None)
Quarter: 2011Q2

REPORT INFORMATION
  Report Type: 
  Country: None (occurrence: None)
  Receive Date: 20110511
  Receipt Date: 20110511
  Transmission Date: 20111010
  Serious: Yes (Other)
  Sender: FDA-Public Use
  Company Number: None

PATIENT
  Age: 65 Year
  Sex: Male

DRUGS (2)
  1. PRAMIPEXOLE DIHYDROCHLORIDE [Suspect]
     Dates: start: 20110422, end: 20110507
  2. PRAMIPEXOLE DIHYDROCHLORIDE [Suspect]

REACTIONS (2)
  - MEDICATION ERROR [None]
  - DRUG DISPENSING ERROR [None]
